FAERS Safety Report 8769810 (Version 1)
Quarter: 2012Q4

REPORT INFORMATION
  Report Type: 
  Country: CH (occurrence: CH)
  Receive Date: 20120905
  Receipt Date: 20120905
  Transmission Date: 20130627
  Serious: Yes (Hospitalization, Other)
  Sender: FDA-Public Use
  Company Number: CH-009507513-1208CHE010192

PATIENT

DRUGS (2)
  1. REMERON [Suspect]
     Dosage: 900 mg, Once
     Route: 048
     Dates: start: 20120528, end: 20120528
  2. FLUOXETINE [Suspect]
     Dosage: 1000 mg, Once
     Route: 048
     Dates: start: 20120528, end: 20120528

REACTIONS (9)
  - Nystagmus [Unknown]
  - Nausea [Unknown]
  - Dizziness [Unknown]
  - Headache [Unknown]
  - Somnolence [Unknown]
  - Vomiting [Unknown]
  - Agitation [Unknown]
  - Suicide attempt [Recovered/Resolved]
  - Intentional overdose [Unknown]
